FAERS Safety Report 6183340-8 (Version None)
Quarter: 2009Q2

REPORT INFORMATION
  Report Type: 
  Country: None (occurrence: None)
  Receive Date: 20090507
  Receipt Date: 20090424
  Transmission Date: 20091009
  Serious: Yes (Life-Threatening)
  Sender: FDA-Public Use
  Company Number: US-TYCO HEALTHCARE/MALLINCKRODT-T200900929

PATIENT
  Sex: Female

DRUGS (1)
  1. OXYCODONE HCL [Suspect]

REACTIONS (1)
  - SUICIDE ATTEMPT [None]
